FAERS Safety Report 16663198 (Version 1)
Quarter: 2019Q3

REPORT INFORMATION
  Report Type: Spontaneous
  Country: ES (occurrence: ES)
  Receive Date: 20190802
  Receipt Date: 20190802
  Transmission Date: 20191004
  Serious: Yes (Hospitalization, Other)
  Sender: FDA-Public Use
  Company Number: ES-MYLANLABS-2019M1071749

PATIENT
  Age: 78 Year
  Sex: Female

DRUGS (4)
  1. SEGURIL [Concomitant]
     Active Substance: FUROSEMIDE
     Dosage: UNK
  2. TRANKIMAZIN [Suspect]
     Active Substance: ALPRAZOLAM
     Indication: ANXIETY
     Dosage: 0.5 MG, 2X/DAY
  3. LOSARTAN STADA [Concomitant]
     Dosage: UNK
  4. SERTRALINE [Suspect]
     Active Substance: SERTRALINE HYDROCHLORIDE
     Indication: ANXIETY
     Dosage: UNK

REACTIONS (11)
  - Cardiac failure [Unknown]
  - Dyskinesia [Unknown]
  - Swelling [Unknown]
  - Tension [Unknown]
  - Nervousness [Unknown]
  - Musculoskeletal chest pain [Unknown]
  - Anxiety [Unknown]
  - Thrombosis [Unknown]
  - Head discomfort [Unknown]
  - Nasopharyngitis [Unknown]
  - Oedema peripheral [Unknown]
